FAERS Safety Report 20591605 (Version 2)
Quarter: 2022Q2

REPORT INFORMATION
  Report Type: Report from Study
  Country: FR (occurrence: None)
  Receive Date: 20220314
  Receipt Date: 20220621
  Transmission Date: 20220720
  Serious: Yes (Hospitalization)
  Sender: FDA-Public Use
  Company Number: FR-ROCHE-3042792

PATIENT
  Age: 54 Year
  Sex: Male
  Weight: 104 kg

DRUGS (3)
  1. TIRAGOLUMAB [Suspect]
     Active Substance: TIRAGOLUMAB
     Indication: Non-small cell lung cancer stage III
     Dosage: ON 15/FEB/2022, THE PATIENT HAD MOST RECENT DOSE (840 MG) OF TIRAGOLUMAB.
     Route: 042
     Dates: start: 20220118
  2. ATEZOLIZUMAB [Suspect]
     Active Substance: ATEZOLIZUMAB
     Indication: Non-small cell lung cancer stage III
     Dosage: ON 15/FEB/2022, THE PATIENT HAD MOST RECENT DOSE (1680 MG) OF ATEZOLIZUMAB.
     Route: 041
     Dates: start: 20220118
  3. DOXYCYCLINE [Concomitant]
     Active Substance: DOXYCYCLINE

REACTIONS (1)
  - Interstitial lung disease [Not Recovered/Not Resolved]

NARRATIVE: CASE EVENT DATE: 20220301
